FAERS Safety Report 9458249 (Version 1)
Quarter: 2013Q3

REPORT INFORMATION
  Report Type: Spontaneous
  Country: US (occurrence: None)
  Receive Date: 20130813
  Receipt Date: 20130813
  Transmission Date: 20140515
  Serious: No
  Sender: FDA-Public Use
  Company Number: None

PATIENT
  Age: 41 Year
  Sex: Female
  Weight: 88 kg

DRUGS (2)
  1. MONTELUKAST [Suspect]
     Indication: SEASONAL ALLERGY
     Dosage: 1 PILL QD ORAL
     Route: 048
     Dates: start: 20130501, end: 20131012
  2. MONTELUKAST [Suspect]
     Indication: ASTHMA
     Dosage: 1 PILL QD ORAL
     Route: 048
     Dates: start: 20130501, end: 20131012

REACTIONS (1)
  - Drug ineffective [None]
